FAERS Safety Report 10167345 (Version 1)
Quarter: 2014Q2

REPORT INFORMATION
  Report Type: Spontaneous
  Country: US (occurrence: US)
  Receive Date: 20140512
  Receipt Date: 20140512
  Transmission Date: 20141212
  Serious: No
  Sender: FDA-Public Use
  Company Number: US-JNJFOC-20140501955

PATIENT
  Age: 36 Year
  Sex: Male

DRUGS (3)
  1. DURAGESIC [Suspect]
     Indication: PRODUCT USED FOR UNKNOWN INDICATION
     Route: 062
  2. FLUOXETINE [Concomitant]
     Route: 048
  3. DIAZEPAM [Concomitant]
     Indication: INSOMNIA
     Dosage: AS NEEDED
     Route: 048

REACTIONS (3)
  - Drug dose omission [Unknown]
  - Medication error [Unknown]
  - Product quality issue [Unknown]
